FAERS Safety Report 16836715 (Version 5)
Quarter: 2020Q3

REPORT INFORMATION
  Report Type: Spontaneous
  Country: US (occurrence: US)
  Receive Date: 20190922
  Receipt Date: 20200922
  Transmission Date: 20201102
  Serious: Yes (Other)
  Sender: FDA-Public Use
  Company Number: US-PHARMING-PHAUS2019000490

PATIENT

DRUGS (12)
  1. TYLENOL [Concomitant]
     Active Substance: ACETAMINOPHEN
     Indication: PRODUCT USED FOR UNKNOWN INDICATION
     Dosage: 325 MG, UNK
  2. RUCONEST [Suspect]
     Active Substance: HUMAN C1-ESTERASE INHIBITOR
     Dosage: 4200 IU INTERNATIONAL UNIT(S), PRN
     Route: 042
     Dates: start: 20150921
  3. EPINEPHRINE. [Concomitant]
     Active Substance: EPINEPHRINE
     Indication: PRODUCT USED FOR UNKNOWN INDICATION
     Dosage: UNK
  4. ALEVE [Concomitant]
     Active Substance: NAPROXEN SODIUM
     Indication: PRODUCT USED FOR UNKNOWN INDICATION
     Dosage: 220 MG, UNK
  5. RUCONEST [Suspect]
     Active Substance: HUMAN C1-ESTERASE INHIBITOR
     Dosage: 4200 IU, AS NEEDED
     Route: 042
     Dates: start: 20171013
  6. LMX4 [Concomitant]
     Active Substance: LIDOCAINE
     Indication: PRODUCT USED FOR UNKNOWN INDICATION
     Dosage: UNK
  7. HEPARIN [Concomitant]
     Active Substance: HEPARIN SODIUM
     Indication: PRODUCT USED FOR UNKNOWN INDICATION
     Dosage: 100 IU/ML
  8. ZYRTEC [Concomitant]
     Active Substance: CETIRIZINE HYDROCHLORIDE
     Indication: PRODUCT USED FOR UNKNOWN INDICATION
     Dosage: 10 MG, UNK
  9. RUCONEST [Suspect]
     Active Substance: HUMAN C1-ESTERASE INHIBITOR
     Indication: HEREDITARY ANGIOEDEMA
     Dosage: 4200 IU, AS NEEDED
     Route: 042
     Dates: start: 20171013
  10. HAEGARDA [Concomitant]
     Active Substance: HUMAN C1-ESTERASE INHIBITOR
     Indication: PRODUCT USED FOR UNKNOWN INDICATION
     Dosage: UNK
  11. ZOFRAN [Concomitant]
     Active Substance: ONDANSETRON HYDROCHLORIDE
     Indication: PRODUCT USED FOR UNKNOWN INDICATION
     Dosage: 4 MG, UNK
  12. DIFFERIN [Concomitant]
     Active Substance: ADAPALENE
     Indication: PRODUCT USED FOR UNKNOWN INDICATION
     Dosage: 0.1 %, UNK

REACTIONS (6)
  - Rhinoplasty [Unknown]
  - Hereditary angioedema [Unknown]
  - Pharyngitis [Unknown]
  - Tonsillectomy [Unknown]
  - Tonsillitis [Unknown]
  - Sinusitis [Unknown]
